FAERS Safety Report 21310890 (Version 2)
Quarter: 2022Q3

REPORT INFORMATION
  Report Type: Spontaneous
  Country: US (occurrence: US)
  Receive Date: 20220909
  Receipt Date: 20220915
  Transmission Date: 20221026
  Serious: No
  Sender: FDA-Public Use
  Company Number: US-GILEAD-2022-0596748

PATIENT
  Sex: Male

DRUGS (1)
  1. EPCLUSA [Suspect]
     Active Substance: SOFOSBUVIR\VELPATASVIR
     Indication: Chronic hepatitis C
     Dosage: 1 DOSAGE FORM, QD FOR 12 WEEKS
     Route: 048
     Dates: start: 20220818

REACTIONS (4)
  - Fatigue [Recovered/Resolved]
  - Weight increased [Unknown]
  - Abdominal pain upper [Unknown]
  - Sluggishness [Unknown]
